FAERS Safety Report 5387212-8 (Version None)
Quarter: 2007Q3

REPORT INFORMATION
  Report Type: 
  Country: None (occurrence: None)
  Receive Date: 20070711
  Receipt Date: 20070626
  Transmission Date: 20080115
  Serious: Yes (Other)
  Sender: FDA-Public Use
  Company Number: 2007S1000100

PATIENT
  Age: 23 Year
  Sex: Female

DRUGS (1)
  1. SORIATANE [Suspect]
     Indication: KERATOSIS FOLLICULAR
     Dosage: 10 MG;QD;PO
     Route: 048
     Dates: start: 20060701, end: 20060830

REACTIONS (2)
  - DRUG EXPOSURE DURING PREGNANCY [None]
  - PREGNANCY [None]
